FAERS Safety Report 5263611-X (Version None)
Quarter: 2007Q1

REPORT INFORMATION
  Report Type: 
  Country: None (occurrence: None)
  Receive Date: 20070313
  Receipt Date: 20070301
  Transmission Date: 20070707
  Serious: Yes (Disabling)
  Sender: FDA-Public Use
  Company Number: FR-ROCHE-485497

PATIENT
  Age: 75 Year
  Sex: Male

DRUGS (1)
  1. ROCEPHIN [Suspect]
     Indication: RESPIRATORY DISORDER
     Dosage: FORM: INJECTABLE SOLUTION.
     Route: 030

REACTIONS (1)
  - JOINT RANGE OF MOTION DECREASED [None]
